FAERS Safety Report 6903322-5 (Version None)
Quarter: 2010Q3

REPORT INFORMATION
  Report Type: 
  Country: None (occurrence: None)
  Receive Date: 20100803
  Receipt Date: 20081105
  Transmission Date: 20110219
  Serious: No
  Sender: FDA-Public Use
  Company Number: US-PFIZER INC-2008076924

PATIENT
  Sex: Female
  Weight: 65.77 kg

DRUGS (4)
  1. LYRICA [Suspect]
     Indication: FIBROMYALGIA
     Dates: start: 20080701, end: 20080901
  2. LAMICTAL [Concomitant]
  3. MIRAPEX [Concomitant]
  4. SYNTHROID [Concomitant]

REACTIONS (1)
  - PAIN IN EXTREMITY [None]
